FAERS Safety Report 5320519-9 (Version None)
Quarter: 2007Q1

REPORT INFORMATION
  Report Type: 
  Country: None (occurrence: None)
  Receive Date: 20070220
  Receipt Date: 20061212
  Transmission Date: 20070707
  Serious: No
  Sender: FDA-Public Use
  Company Number: WAES 0612USA01596

PATIENT
  Age: 78 Year
  Sex: Female
  Weight: 87.5442 kg

DRUGS (8)
  1. JANUVIA [Suspect]
     Indication: DIABETES MELLITUS NON-INSULIN-DEPENDENT
     Dosage: 100 MG/DAILY/PO
     Route: 048
     Dates: start: 20061030, end: 20061106
  2. ACTOS [Concomitant]
  3. AMARYL [Concomitant]
  4. NEXIUM [Concomitant]
  5. PRINIVIL [Concomitant]
  6. TENORMIN [Concomitant]
  7. ZETIA [Concomitant]
  8. ZOCOR [Concomitant]

REACTIONS (3)
  - FLANK PAIN [None]
  - HEART RATE INCREASED [None]
  - HYPERHIDROSIS [None]
